FAERS Safety Report 8809031 (Version 2)
Quarter: 2012Q4

REPORT INFORMATION
  Report Type: 
  Country: US (occurrence: US)
  Receive Date: 20120926
  Receipt Date: 20121108
  Transmission Date: 20130627
  Serious: Yes (Other)
  Sender: FDA-Public Use
  Company Number: US-PFIZER INC-2012235001

PATIENT
  Age: 85 Year
  Sex: Female
  Weight: 47.2 kg

DRUGS (6)
  1. PREMARIN VAGINAL CREAM [Suspect]
     Indication: INADEQUATE LUBRICATION
     Dosage: three times a week
     Route: 067
  2. ATORVASTATIN [Concomitant]
     Dosage: UNK
  3. LISINOPRIL [Concomitant]
     Dosage: UNK
  4. HYDROCHLOROTHIAZIDE [Concomitant]
     Dosage: UNK
  5. ZETIA [Concomitant]
     Dosage: UNK
  6. VESICARE [Concomitant]
     Dosage: UNK

REACTIONS (2)
  - Lung disorder [Unknown]
  - Haemoglobin decreased [Unknown]
